FAERS Safety Report 8845492 (Version 1)
Quarter: 2012Q4

REPORT INFORMATION
  Report Type: 
  Country: US (occurrence: US)
  Receive Date: 20121017
  Receipt Date: 20121017
  Transmission Date: 20130627
  Serious: No
  Sender: FDA-Public Use
  Company Number: US-PFIZER INC-2012253936

PATIENT
  Sex: Male

DRUGS (2)
  1. BOSULIF [Suspect]
     Indication: LEUKAEMIA
     Dosage: 500 mg, 1x/day
     Route: 048
     Dates: start: 20121001, end: 201210
  2. BOSULIF [Suspect]
     Dosage: cutting 500 mg into half to take it 2x/day
     Route: 048
     Dates: start: 201210

REACTIONS (2)
  - Diarrhoea [Unknown]
  - Abdominal pain upper [Unknown]
